FAERS Safety Report 21345834 (Version 1)
Quarter: 2022Q3

REPORT INFORMATION
  Report Type: Spontaneous
  Country: DE (occurrence: DE)
  Receive Date: 20220916
  Receipt Date: 20220916
  Transmission Date: 20221026
  Serious: Yes (Hospitalization)
  Sender: FDA-Public Use
  Company Number: None

PATIENT
  Age: 70 Year
  Sex: Female
  Weight: 59 kg

DRUGS (13)
  1. GABAPENTIN [Suspect]
     Active Substance: GABAPENTIN
     Dosage: UNK, AS NEEDED
     Route: 048
  2. SIMVASTATIN [Concomitant]
     Active Substance: SIMVASTATIN
     Dosage: 40 MG, 0-0-1-0
     Route: 048
  3. CINACALCET [Concomitant]
     Active Substance: CINACALCET
     Dosage: 30 MG, FOUR TIMES A WEEK
     Route: 048
  4. ASPIRIN [Concomitant]
     Active Substance: ASPIRIN
     Dosage: 100 MG, 0-0-1-0
     Route: 048
  5. ASCORBIC ACID CALCIUM [Concomitant]
     Dosage: ON DIALYSIS-FREE DAYS
     Route: 048
  6. BISOPROLOL [Concomitant]
     Active Substance: BISOPROLOL
     Dosage: 5 MG, 1-0-1-0
     Route: 048
  7. CANDESARTAN [Concomitant]
     Active Substance: CANDESARTAN
     Dosage: 16 MG, 1-0-0-0
     Route: 048
  8. DIHYDRALAZINE SULFATE [Concomitant]
     Active Substance: DIHYDRALAZINE SULFATE
     Dosage: 25 MG, UP TO 4 TIMES A DAY, DEPENDING ON RR
     Route: 048
  9. MOXONIDINE [Concomitant]
     Active Substance: MOXONIDINE
     Dosage: 0.3 MG, 0-0-1-0
     Route: 048
  10. ZINC OXIDE [Concomitant]
     Active Substance: ZINC OXIDE
     Dosage: TWO TO THREE TIMES A DAY
     Route: 003
  11. ENOXAPARIN [Concomitant]
     Active Substance: ENOXAPARIN
     Dosage: 8000 IU, 0-0-1-0
     Route: 058
  12. OMEPRAZOLE [Concomitant]
     Active Substance: OMEPRAZOLE
     Dosage: 40 MG, 1-0-1-0
     Route: 048
  13. ACYCLOVIR [Concomitant]
     Active Substance: ACYCLOVIR
     Dosage: 800 MG, 1-0-1-0
     Route: 048

REACTIONS (6)
  - Dizziness [Unknown]
  - Dysaesthesia [Unknown]
  - Speech disorder [Unknown]
  - Headache [Unknown]
  - Nausea [Unknown]
  - Herpes zoster [Unknown]
